FAERS Safety Report 11825453 (Version 2)
Quarter: 2015Q4

REPORT INFORMATION
  Report Type: Spontaneous
  Country: CA (occurrence: CA)
  Receive Date: 20151211
  Receipt Date: 20151215
  Transmission Date: 20160305
  Serious: Yes (Other)
  Sender: FDA-Public Use
  Company Number: CA-PFIZER INC-2015420985

PATIENT
  Age: 62 Year
  Sex: Female

DRUGS (6)
  1. SUNITINIB MALATE. [Suspect]
     Active Substance: SUNITINIB MALATE
     Indication: METASTATIC RENAL CELL CARCINOMA
     Dosage: 50 MG DAILY, CYCLIC FOR 4 WEEKS ON AND 2 WEEKS OFF
     Dates: start: 20100101, end: 201001
  2. SUNITINIB MALATE. [Suspect]
     Active Substance: SUNITINIB MALATE
     Dosage: 25 MG DAILY, CYCLIC FOR 2 WEEKS ON, 7-10 DAYS OFF
     Dates: start: 201003, end: 201301
  3. HYDROCHLOROTHIAZIDE. [Concomitant]
     Active Substance: HYDROCHLOROTHIAZIDE
     Indication: HYPERTENSION
     Dosage: UNK
  4. SUNITINIB MALATE. [Suspect]
     Active Substance: SUNITINIB MALATE
     Dosage: 50 MG DAILY, CYCLIC FOR 4 WEEKS ON AND 2 WEEKS OFF
     Dates: start: 201001, end: 20100125
  5. SUNITINIB MALATE. [Suspect]
     Active Substance: SUNITINIB MALATE
     Dosage: 37.5 MG DAILY CONTINUOUS AFTER A 3 WEEK BREAK
     Dates: start: 201002, end: 201003
  6. SUNITINIB MALATE. [Suspect]
     Active Substance: SUNITINIB MALATE
     Dosage: 25 MG DAILY, CYCLIC FOR 2 WEEKS ON, 7-10 DAYS OFF
     Dates: start: 201310

REACTIONS (15)
  - Neutropenia [Recovered/Resolved]
  - Epistaxis [Recovered/Resolved]
  - Bone marrow toxicity [Not Recovered/Not Resolved]
  - Thrombocytopenia [Recovered/Resolved]
  - Diplopia [Unknown]
  - Nausea [Unknown]
  - Palmar-plantar erythrodysaesthesia syndrome [Recovered/Resolved]
  - Hypothyroidism [Not Recovered/Not Resolved]
  - Stomatitis [Recovered/Resolved]
  - Metastatic renal cell carcinoma [Unknown]
  - Headache [Unknown]
  - Petechiae [Recovered/Resolved]
  - Disease progression [Unknown]
  - Hypertension [Recovered/Resolved]
  - Fatigue [Recovered/Resolved]

NARRATIVE: CASE EVENT DATE: 20100107
